FAERS Safety Report 5277352-6 (Version None)
Quarter: 2007Q1

REPORT INFORMATION
  Report Type: 
  Country: None (occurrence: None)
  Receive Date: 20061213
  Receipt Date: 20040816
  Transmission Date: 20070707
  Serious: Yes (Hospitalization)
  Sender: FDA-Public Use
  Company Number: 2004AC00231

PATIENT
  Age: 15 Year
  Sex: Female

DRUGS (1)
  1. QUETIAPINE FUMARATE [Suspect]

REACTIONS (5)
  - AGITATION [None]
  - CONFUSIONAL STATE [None]
  - HALLUCINATION [None]
  - OVERDOSE [None]
  - TACHYCARDIA [None]
